FAERS Safety Report 17199013 (Version 1)
Quarter: 2019Q4

REPORT INFORMATION
  Report Type: Report from Study
  Country: US (occurrence: US)
  Receive Date: 20191225
  Receipt Date: 20191225
  Transmission Date: 20200122
  Serious: No
  Sender: FDA-Public Use
  Company Number: PHHY2018US192552

PATIENT
  Age: 59 Year
  Sex: Female

DRUGS (1)
  1. GILENYA [Suspect]
     Active Substance: FINGOLIMOD HYDROCHLORIDE
     Indication: MULTIPLE SCLEROSIS
     Dosage: UNK, QD
     Route: 048

REACTIONS (6)
  - Vertigo [Unknown]
  - Dizziness [Unknown]
  - Palpitations [Recovered/Resolved]
  - Dry eye [Unknown]
  - Depressive symptom [Unknown]
  - Fatigue [Unknown]

NARRATIVE: CASE EVENT DATE: 20180910
